FAERS Safety Report 10238360 (Version 1)
Quarter: 2014Q2

REPORT INFORMATION
  Report Type: Spontaneous
  Country: US (occurrence: US)
  Receive Date: 20140616
  Receipt Date: 20140616
  Transmission Date: 20141212
  Serious: Yes (Hospitalization)
  Sender: FDA-Public Use
  Company Number: US-BAYER-2014-089662

PATIENT
  Age: 30 Year
  Sex: Female
  Weight: 89.34 kg

DRUGS (7)
  1. YAZ [Suspect]
  2. YASMIN [Suspect]
  3. VENTOLIN INHALER [Concomitant]
     Dosage: OCCASIONALLY
     Dates: start: 20110413
  4. ALBUTEROL [Concomitant]
  5. SENOKOT [Concomitant]
  6. LORTAB [Concomitant]
  7. IBUPROFEN [Concomitant]

REACTIONS (1)
  - Deep vein thrombosis [None]
